FAERS Safety Report 6802063-2 (Version None)
Quarter: 2010Q2

REPORT INFORMATION
  Report Type: 
  Country: None (occurrence: None)
  Receive Date: 20100629
  Receipt Date: 20071127
  Transmission Date: 20101027
  Serious: No
  Sender: FDA-Public Use
  Company Number: US-PFIZER INC-2007074606

PATIENT
  Sex: Female
  Weight: 56.818 kg

DRUGS (1)
  1. CLEOCIN VAGINAL CREAM [Suspect]
     Indication: INFECTION
     Dates: start: 20070905, end: 20070906

REACTIONS (1)
  - VAGINAL HAEMORRHAGE [None]
